FAERS Safety Report 22106616 (Version 1)
Quarter: 2023Q1

REPORT INFORMATION
  Report Type: Spontaneous
  Country: US (occurrence: US)
  Receive Date: 20230317
  Receipt Date: 20230317
  Transmission Date: 20230418
  Serious: No
  Sender: FDA-Public Use
  Company Number: US-SANOFI-01519756

PATIENT
  Age: 65 Year
  Sex: Female

DRUGS (3)
  1. TOUJEO MAX [Suspect]
     Active Substance: INSULIN GLARGINE
     Dosage: UNK
  2. TRULICITY [Concomitant]
     Active Substance: DULAGLUTIDE
  3. TYLENOL [Concomitant]
     Active Substance: ACETAMINOPHEN

REACTIONS (3)
  - Generalised oedema [Recovering/Resolving]
  - Pain [Recovering/Resolving]
  - Hepatic steatosis [Recovering/Resolving]
